FAERS Safety Report 5289176-4 (Version None)
Quarter: 2007Q1

REPORT INFORMATION
  Report Type: 
  Country: None (occurrence: None)
  Receive Date: 20070118
  Receipt Date: 20061115
  Transmission Date: 20070707
  Serious: Yes (Other)
  Sender: FDA-Public Use
  Company Number: HQWYE912217NOV06

PATIENT
  Age: 79 Year
  Sex: Male
  Weight: 108.96 kg

DRUGS (3)
  1. ADVIL PM [Suspect]
     Indication: INSOMNIA
     Dosage: ONE CAPLET ONE TIME, ORAL
     Route: 048
     Dates: start: 20061114, end: 20061114
  2. ADVIL PM [Suspect]
     Indication: PAIN IN EXTREMITY
     Dosage: ONE CAPLET ONE TIME, ORAL
     Route: 048
     Dates: start: 20061114, end: 20061114
  3. HYTRIN [Concomitant]

REACTIONS (4)
  - DIZZINESS [None]
  - DRUG INEFFECTIVE [None]
  - HEART RATE INCREASED [None]
  - NERVOUSNESS [None]
